APPROVED DRUG PRODUCT: ADVIL MULTI-SYMPTOM COLD & FLU
Active Ingredient: CHLORPHENIRAMINE MALEATE; IBUPROFEN; PHENYLEPHRINE HYDROCHLORIDE
Strength: 4MG;200MG;10MG
Dosage Form/Route: TABLET;ORAL
Application: N022113 | Product #002
Applicant: HALEON US HOLDINGS LLC
Approved: Apr 28, 2017 | RLD: Yes | RS: Yes | Type: OTC